FAERS Safety Report 24001062 (Version 1)
Quarter: 2024Q2

REPORT INFORMATION
  Report Type: Spontaneous
  Country: US (occurrence: None)
  Receive Date: 20240621
  Receipt Date: 20240621
  Transmission Date: 20240715
  Serious: Yes (Hospitalization)
  Sender: FDA-Public Use
  Company Number: None

PATIENT
  Age: 75 Year
  Sex: Male
  Weight: 79 kg

DRUGS (1)
  1. WARFARIN SODIUM [Suspect]
     Active Substance: WARFARIN SODIUM
     Indication: Mitral valve repair
     Dosage: FREQUENCY : DAILY;?
     Route: 048

REACTIONS (7)
  - Haemorrhage [None]
  - Tachycardia [None]
  - Abdominal pain [None]
  - Anticoagulation drug level above therapeutic [None]
  - Rectal haemorrhage [None]
  - Haemoglobin decreased [None]
  - Haematocrit decreased [None]

NARRATIVE: CASE EVENT DATE: 20231228
